FAERS Safety Report 18168072 (Version 2)
Quarter: 2020Q3

REPORT INFORMATION
  Report Type: Spontaneous
  Country: US (occurrence: US)
  Receive Date: 20200819
  Receipt Date: 20200904
  Transmission Date: 20201103
  Serious: No
  Sender: FDA-Public Use
  Company Number: US-SA-2020SA217227

PATIENT

DRUGS (2)
  1. DUPIXENT [Suspect]
     Active Substance: DUPILUMAB
     Dosage: 300 MG, QOW
     Route: 065
     Dates: start: 202008
  2. DUPIXENT [Suspect]
     Active Substance: DUPILUMAB
     Indication: DERMATITIS ATOPIC
     Dosage: UNK UNK, 1X
     Route: 065
     Dates: start: 20200811, end: 20200811

REACTIONS (10)
  - Condition aggravated [Unknown]
  - Paraesthesia [Recovering/Resolving]
  - Oropharyngeal pain [Unknown]
  - Condition aggravated [Recovering/Resolving]
  - Dysphonia [Unknown]
  - Rash pruritic [Recovering/Resolving]
  - Pain [Unknown]
  - Respiratory tract congestion [Unknown]
  - Drug ineffective [Unknown]
  - Off label use [Unknown]

NARRATIVE: CASE EVENT DATE: 202008
